FAERS Safety Report 7049749-5 (Version None)
Quarter: 2010Q4

REPORT INFORMATION
  Report Type: 
  Country: None (occurrence: None)
  Receive Date: 20101018
  Receipt Date: 20101011
  Transmission Date: 20110411
  Serious: Yes (Hospitalization)
  Sender: FDA-Public Use
  Company Number: B0679564A

PATIENT
  Sex: Male
  Weight: 57 kg

DRUGS (5)
  1. PAZOPANIB [Suspect]
     Indication: BREAST NEOPLASM
     Route: 065
     Dates: start: 20100928
  2. DOCETAXEL [Suspect]
     Indication: BREAST NEOPLASM
     Route: 065
     Dates: start: 20101005
  3. ESOMEPRAZOLE MAGNESIUM [Concomitant]
     Dosage: 20MG PER DAY
     Route: 048
     Dates: start: 20101005, end: 20101006
  4. CYTOSTATICS [Concomitant]
     Route: 065
     Dates: start: 20101005, end: 20101006
  5. DEXAMETHASONE [Concomitant]
     Dosage: 8MG TWICE PER DAY
     Route: 048
     Dates: start: 20101005, end: 20101006

REACTIONS (4)
  - DEHYDRATION [None]
  - MUCOSAL INFLAMMATION [None]
  - ORAL CANDIDIASIS [None]
  - STOMATITIS [None]
